FAERS Safety Report 7463179-3 (Version None)
Quarter: 2011Q2

REPORT INFORMATION
  Report Type: 
  Country: None (occurrence: None)
  Receive Date: 20110506
  Receipt Date: 20110503
  Transmission Date: 20111010
  Serious: Yes (Other)
  Sender: FDA-Public Use
  Company Number: US-SHIRE-ALL1-2011-01345

PATIENT
  Sex: Male

DRUGS (2)
  1. VPRIV [Suspect]
     Indication: GAUCHER'S DISEASE
     Dosage: UNK, UNKNOWN
     Route: 041
     Dates: start: 20100623
  2. VPRIV [Suspect]
     Dosage: 4300 IU, 1X/2WKS
     Route: 041
     Dates: start: 20110101

REACTIONS (5)
  - CONDITION AGGRAVATED [None]
  - COGNITIVE DISORDER [None]
  - WEIGHT DECREASED [None]
  - PAIN [None]
  - BONE PAIN [None]
